FAERS Safety Report 24424637 (Version 18)
Quarter: 2025Q3

REPORT INFORMATION
  Report Type: Report from Study
  Country: US (occurrence: US)
  Receive Date: 20241010
  Receipt Date: 20250922
  Transmission Date: 20251020
  Serious: Yes (Disabling, Other)
  Sender: UCB
  Company Number: US-UCBSA-2024046979

PATIENT
  Sex: Male
  Weight: 63 kg

DRUGS (38)
  1. FINTEPLA [Suspect]
     Active Substance: FENFLURAMINE
     Indication: Lennox-Gastaut syndrome
     Dosage: 5.9 MILLILITER, 2X/DAY (BID)
     Route: 048
     Dates: start: 20240717
  2. FINTEPLA [Suspect]
     Active Substance: FENFLURAMINE
     Dosage: 5.9 MILLILITER, 2X/DAY (BID)
     Route: 048
     Dates: start: 20240811
  3. FINTEPLA [Suspect]
     Active Substance: FENFLURAMINE
     Dosage: 5.9 MILLILITER, 2X/DAY (BID)
     Dates: start: 2024
  4. FINTEPLA [Suspect]
     Active Substance: FENFLURAMINE
     Dosage: 5.9 MILLILITER, 2X/DAY (BID)
     Dates: start: 2024
  5. FINTEPLA [Suspect]
     Active Substance: FENFLURAMINE
     Dosage: 5.9 MILLILITER, 2X/DAY (BID)
     Dates: start: 2024
  6. FINTEPLA [Suspect]
     Active Substance: FENFLURAMINE
     Dosage: 5 MILLILITER, 2X/DAY (BID)
     Dates: start: 2024
  7. FINTEPLA [Suspect]
     Active Substance: FENFLURAMINE
     Dosage: 5.9 MILLILITER, 2X/DAY (BID)
     Route: 048
     Dates: start: 2024
  8. FINTEPLA [Suspect]
     Active Substance: FENFLURAMINE
     Dosage: 5.9 MILLILITER, 2X/DAY (BID)
     Dates: start: 2024
  9. FINTEPLA [Suspect]
     Active Substance: FENFLURAMINE
     Dosage: 5.9 MILLILITER, 2X/DAY (BID)
     Dates: start: 2024
  10. FINTEPLA [Suspect]
     Active Substance: FENFLURAMINE
     Dosage: 5.9 MILLILITER, 2X/DAY (BID)
     Dates: start: 2024
  11. FINTEPLA [Suspect]
     Active Substance: FENFLURAMINE
     Dosage: 5.9 MILLILITER, 2X/DAY (BID)
     Dates: start: 2024
  12. FINTEPLA [Suspect]
     Active Substance: FENFLURAMINE
     Dates: start: 2024
  13. FINTEPLA [Suspect]
     Active Substance: FENFLURAMINE
     Dosage: 5.9 MILLILITER, 2X/DAY (BID)
  14. VIMPAT [Suspect]
     Active Substance: LACOSAMIDE
     Indication: Epilepsy
     Dosage: 20 MILLILITER, 2X/DAY (BID)
     Route: 048
     Dates: start: 202408
  15. VIMPAT [Suspect]
     Active Substance: LACOSAMIDE
     Indication: Seizure
  16. BRIVIACT [Suspect]
     Active Substance: BRIVARACETAM
     Indication: Epilepsy
     Dosage: 100 MILLIGRAM, 2X/DAY (BID)
     Route: 048
  17. BRIVIACT [Suspect]
     Active Substance: BRIVARACETAM
     Indication: Seizure
  18. CLONAZEPAM [Suspect]
     Active Substance: CLONAZEPAM
     Indication: Lennox-Gastaut syndrome
     Dosage: 1 MILLIGRAM, 3X/DAY (TID)
     Route: 048
  19. CLONAZEPAM [Suspect]
     Active Substance: CLONAZEPAM
     Indication: Seizure
  20. DIASTAT [Suspect]
     Active Substance: DIAZEPAM
     Indication: Seizure
  21. BENZOL [ALBENDAZOLE] [Concomitant]
     Indication: Product used for unknown indication
  22. ARIPIPRAZOLE [Concomitant]
     Active Substance: ARIPIPRAZOLE
     Indication: Lennox-Gastaut syndrome
     Dosage: 10 MILLIGRAM, 2X/DAY (BID)
     Route: 048
  23. CHOLECALCIFEROL [Concomitant]
     Active Substance: CHOLECALCIFEROL
     Indication: Product used for unknown indication
     Dosage: 5 MILLILITER, ONCE DAILY (QD)
     Route: 048
  24. DOCUSATE SODIUM [Concomitant]
     Active Substance: DOCUSATE SODIUM
     Indication: Constipation
     Route: 048
  25. DULCOLAX LIQUID [Concomitant]
     Indication: Constipation
     Dosage: 30 MILLILITER, ONCE DAILY (QD)
     Route: 048
  26. EPIDIOLEX [Concomitant]
     Active Substance: CANNABIDIOL
     Indication: Product used for unknown indication
     Dosage: 5 MILLILITER, 2X/DAY (BID)
     Route: 048
  27. OMEPRAZOLE [Concomitant]
     Active Substance: OMEPRAZOLE
     Indication: Product used for unknown indication
     Dosage: 20 MILLILITER, ONCE DAILY (QD)
     Route: 048
  28. FLUTICASONE [Concomitant]
     Active Substance: FLUTICASONE
     Indication: Product used for unknown indication
     Route: 045
  29. HYPOCYN [Concomitant]
     Indication: Product used for unknown indication
     Route: 061
  30. SIMETHICONE (DIMETHICONE) [Concomitant]
     Active Substance: DIMETHICONE
     Indication: Product used for unknown indication
     Route: 048
  31. NYSTATIN [Concomitant]
     Active Substance: NYSTATIN
     Indication: Product used for unknown indication
     Route: 061
  32. OMEPRAZOLE [Concomitant]
     Active Substance: OMEPRAZOLE
     Indication: Product used for unknown indication
     Route: 048
  33. POLYETHYLENE GLYCOL 3350 [Concomitant]
     Active Substance: POLYETHYLENE GLYCOL 3350
     Indication: Product used for unknown indication
     Route: 048
  34. RUFINAMIDE [Concomitant]
     Active Substance: RUFINAMIDE
     Indication: Seizure
     Dosage: 1000 MILLIGRAM, 3X/DAY (TID)
     Route: 048
  35. TRIAMCINOLONE ACETONIDE [Concomitant]
     Active Substance: TRIAMCINOLONE ACETONIDE
     Indication: Product used for unknown indication
  36. DEXTROSE [Concomitant]
     Active Substance: DEXTROSE MONOHYDRATE
     Indication: Product used for unknown indication
     Route: 048
  37. VALTOCO [Concomitant]
     Active Substance: DIAZEPAM
     Indication: Product used for unknown indication
     Route: 045
  38. ZELTA [OLANZAPINE] [Concomitant]
     Indication: Product used for unknown indication
     Dosage: 10 MILLIGRAM, ONCE DAILY (QD)
     Route: 048

REACTIONS (27)
  - Seizure [Not Recovered/Not Resolved]
  - Blindness cortical [Unknown]
  - Immunodeficiency [Unknown]
  - Disability [Unknown]
  - Cerebral palsy [Unknown]
  - Pulmonary congestion [Unknown]
  - Oxygen saturation decreased [Recovered/Resolved]
  - Tremor [Not Recovered/Not Resolved]
  - Restlessness [Not Recovered/Not Resolved]
  - Dermatophagia [Not Recovered/Not Resolved]
  - Infection [Not Recovered/Not Resolved]
  - Diarrhoea [Recovered/Resolved]
  - Agitation [Recovering/Resolving]
  - Muscle spasms [Unknown]
  - Eye infection [Unknown]
  - Nutritional condition abnormal [Unknown]
  - Constipation [Unknown]
  - Dehydration [Unknown]
  - Bronchitis [Unknown]
  - Skin disorder [Unknown]
  - Conjunctivitis [Unknown]
  - Dermatosis [Unknown]
  - Bedridden [Unknown]
  - Eye operation [Unknown]
  - Brain operation [Unknown]
  - Hypersomnia [Not Recovered/Not Resolved]
  - Drug ineffective [Unknown]

NARRATIVE: CASE EVENT DATE: 20240101
